FAERS Safety Report 4350920-1 (Version None)
Quarter: 2004Q2

REPORT INFORMATION
  Report Type: 
  Country: None (occurrence: None)
  Receive Date: 20040430
  Receipt Date: 20031029
  Transmission Date: 20050107
  Serious: Yes (Death)
  Sender: FDA-Public Use
  Company Number: US-GLAXOSMITHKLINE-B0313891A

PATIENT
  Age: 24 Year
  Sex: Male

DRUGS (2)
  1. BUPROPION HCL [Suspect]
     Dosage: 67TAB CUMULATIVE DOSE
     Route: 048
  2. METHYLENEDIOXYMETHAMPHETAMINE [Suspect]
     Route: 048

REACTIONS (3)
  - CARDIAC ARREST [None]
  - COMPLETED SUICIDE [None]
  - CONVULSION [None]
